FAERS Safety Report 9356028 (Version 1)
Quarter: 2013Q2

REPORT INFORMATION
  Report Type: Spontaneous
  Country: US (occurrence: US)
  Receive Date: 20130619
  Receipt Date: 20130619
  Transmission Date: 20140414
  Serious: Yes (Hospitalization, Other)
  Sender: FDA-Public Use
  Company Number: US-ELI_LILLY_AND_COMPANY-US201305001170

PATIENT
  Age: 66 Year
  Sex: Male

DRUGS (4)
  1. HUMULIN NPH [Suspect]
     Indication: TYPE 2 DIABETES MELLITUS
     Dosage: UNK, PRN
     Dates: start: 2005
  2. HUMULIN NPH [Suspect]
     Dosage: UNK, PRN
     Dates: start: 201302
  3. HUMULIN NPH [Suspect]
     Dosage: UNK, PRN
  4. HUMULIN NPH [Suspect]
     Dosage: UNK, PRN

REACTIONS (5)
  - Cardiac failure congestive [Unknown]
  - Blood glucose increased [Recovered/Resolved]
  - Visual impairment [Unknown]
  - Drug ineffective [Recovered/Resolved]
  - Feeling abnormal [Unknown]
